FAERS Safety Report 5730071-1 (Version None)
Quarter: 2008Q2

REPORT INFORMATION
  Report Type: 
  Country: None (occurrence: None)
  Receive Date: 20080506
  Receipt Date: 20080506
  Transmission Date: 20081010
  Serious: No
  Sender: FDA-Public Use
  Company Number: None

PATIENT

DRUGS (1)
  1. MUCUS RELIEF DM [Suspect]
     Dates: start: 20080412, end: 20080412

REACTIONS (15)
  - BURNING SENSATION [None]
  - DYSPNOEA [None]
  - FEELING HOT [None]
  - GENITAL DISCHARGE [None]
  - GLOSSODYNIA [None]
  - HYPERHIDROSIS [None]
  - IMMOBILE [None]
  - LIP DISORDER [None]
  - NASAL DISCOMFORT [None]
  - ORAL DISCOMFORT [None]
  - PHARMACEUTICAL PRODUCT COMPLAINT [None]
  - SKIN ODOUR ABNORMAL [None]
  - THERAPEUTIC AGENT TOXICITY [None]
  - TRISMUS [None]
  - UNEVALUABLE EVENT [None]
